FAERS Safety Report 8412023 (Version 2)
Quarter: 2013Q2

REPORT INFORMATION
  Report Type: Spontaneous
  Country: CA (occurrence: CA)
  Receive Date: 20120217
  Receipt Date: 20130401
  Transmission Date: 20140414
  Serious: Yes (Life-Threatening)
  Sender: FDA-Public Use
  Company Number: CA-JNJFOC-20120203211

PATIENT
  Age: 30 Year
  Sex: Male
  Weight: 80.6 kg

DRUGS (10)
  1. REMICADE [Suspect]
     Indication: CROHN^S DISEASE
     Dosage: STARTED ON THIS DATE AT 14:47, INCREASED TO 80ML/HR AT 15:02
     Route: 042
     Dates: start: 20120118
  2. REMICADE [Suspect]
     Indication: CROHN^S DISEASE
     Route: 042
     Dates: start: 20111219
  3. REMICADE [Suspect]
     Indication: CROHN^S DISEASE
     Dosage: SECOND START
     Route: 042
     Dates: start: 20111125
  4. REMICADE [Suspect]
     Indication: CROHN^S DISEASE
     Dosage: INITIATED ON AN UNSPECIFIED DATE 2 YEARS PRIOR TO THE DATE OF REPORT
     Route: 042
  5. SOLUCORTEF [Concomitant]
     Indication: PREMEDICATION
     Route: 042
     Dates: start: 20120118
  6. AERIUS [Concomitant]
     Indication: PREMEDICATION
     Route: 048
     Dates: start: 20120118
  7. IMURAN [Concomitant]
     Indication: CROHN^S DISEASE
     Route: 065
  8. IMURAN [Concomitant]
     Indication: CROHN^S DISEASE
     Route: 065
  9. FERROMAX [Concomitant]
  10. BENADRYL [Concomitant]
     Indication: PREMEDICATION
     Route: 065
     Dates: start: 20120118

REACTIONS (4)
  - Dyspnoea [Recovered/Resolved]
  - Infusion related reaction [Recovered/Resolved]
  - Restlessness [Recovered/Resolved]
  - Blood pressure decreased [Recovered/Resolved]
